FAERS Safety Report 13306294 (Version 1)
Quarter: 2017Q1

REPORT INFORMATION
  Report Type: Spontaneous
  Country: US (occurrence: US)
  Receive Date: 20170308
  Receipt Date: 20170308
  Transmission Date: 20170428
  Serious: No
  Sender: FDA-Public Use
  Company Number: US-BAYER-2017-044885

PATIENT
  Age: 89 Year
  Sex: Female
  Weight: 35 kg

DRUGS (1)
  1. MIRALAX [Suspect]
     Active Substance: POLYETHYLENE GLYCOL 3350
     Indication: GASTROINTESTINAL DISORDER
     Dosage: 17 GRAMS IN 8-4 OUNCES OF WARM WATER
     Route: 048
     Dates: start: 1997

REACTIONS (1)
  - Expired product administered [Unknown]
